FAERS Safety Report 25195405 (Version 1)
Quarter: 2025Q2

REPORT INFORMATION
  Report Type: Report from Study
  Country: CA (occurrence: CA)
  Receive Date: 20250415
  Receipt Date: 20250415
  Transmission Date: 20250716
  Serious: Yes (Death)
  Sender: AMGEN
  Company Number: CA-002147023-NVSC2025CA059857

PATIENT
  Sex: Female

DRUGS (1)
  1. AIMOVIG [Suspect]
     Active Substance: ERENUMAB-AOOE
     Indication: Migraine
     Route: 065
     Dates: start: 20220214, end: 20250409

REACTIONS (1)
  - Death [Fatal]
